FAERS Safety Report 9520386 (Version 5)
Quarter: 2016Q4

REPORT INFORMATION
  Report Type: Spontaneous
  Country: US (occurrence: US)
  Receive Date: 20130912
  Receipt Date: 20161007
  Transmission Date: 20170207
  Serious: Yes (Hospitalization, Other)
  Sender: FDA-Public Use
  Company Number: US-RB-058199-13

PATIENT
  Age: 0 Day
  Sex: Male

DRUGS (3)
  1. PRENATAL VITAMINS [Suspect]
     Active Substance: VITAMINS
     Indication: PREGNANCY
     Dosage: DOSING DETAILS UNKNOWN
     Route: 064
  2. BUPRENORPHINE. [Suspect]
     Active Substance: BUPRENORPHINE
     Indication: DRUG DEPENDENCE
     Dosage: 5 MG, DAILY
     Route: 064
  3. POLYETHYLENE GLYCOL [Suspect]
     Active Substance: POLYETHYLENE GLYCOLS
     Indication: CONSTIPATION
     Dosage: DOSING DETAILS UNKNOWN
     Route: 064

REACTIONS (2)
  - Foetal exposure during pregnancy [Recovered/Resolved]
  - Fever neonatal [Recovered/Resolved]

NARRATIVE: CASE EVENT DATE: 20130813
